FAERS Safety Report 5684834-1 (Version None)
Quarter: 2008Q1

REPORT INFORMATION
  Report Type: 
  Country: None (occurrence: None)
  Receive Date: 20080328
  Receipt Date: 20071023
  Transmission Date: 20080703
  Serious: No
  Sender: FDA-Public Use
  Company Number: US-BRISTOL-MYERS SQUIBB COMPANY-13952460

PATIENT
  Sex: Male

DRUGS (2)
  1. ERBITUX [Suspect]
  2. NAPROXEN [Concomitant]

REACTIONS (2)
  - ACCIDENTAL EXPOSURE [None]
  - THERAPEUTIC PRODUCT CONTAMINATION [None]
